FAERS Safety Report 6854636-9 (Version None)
Quarter: 2010Q3

REPORT INFORMATION
  Report Type: 
  Country: None (occurrence: None)
  Receive Date: 20100717
  Receipt Date: 20080220
  Transmission Date: 20110219
  Serious: No
  Sender: FDA-Public Use
  Company Number: US-PFIZER INC-2008001864

PATIENT
  Age: 35 Year
  Sex: Male
  Weight: 159.1 kg

DRUGS (2)
  1. CHANTIX [Suspect]
     Dates: start: 20070101
  2. GLUCOPHAGE [Concomitant]
     Indication: DIABETES MELLITUS

REACTIONS (1)
  - DRUG INEFFECTIVE [None]
